FAERS Safety Report 7308030-7 (Version None)
Quarter: 2011Q1

REPORT INFORMATION
  Report Type: 
  Country: None (occurrence: None)
  Receive Date: 20110223
  Receipt Date: 20100823
  Transmission Date: 20110831
  Serious: Yes (Hospitalization, Other)
  Sender: FDA-Public Use
  Company Number: US-BAYER-200937446NA

PATIENT
  Sex: Female
  Weight: 64 kg

DRUGS (10)
  1. ZYRTEC [Concomitant]
     Indication: PRODUCT USED FOR UNKNOWN INDICATION
     Route: 065
  2. UNKNOWN DRUG [Concomitant]
     Indication: CONTRACEPTION
     Route: 065
  3. YAZ [Suspect]
     Indication: CONTRACEPTION
     Route: 048
     Dates: start: 20060101, end: 20081201
  4. PRAVACHOL [Concomitant]
     Indication: PRODUCT USED FOR UNKNOWN INDICATION
     Route: 065
  5. UNCODEABLE ^UNCLASSIFIABLE^ [Concomitant]
     Indication: CONTRACEPTION
  6. ALBUTEROL [Concomitant]
     Indication: PRODUCT USED FOR UNKNOWN INDICATION
     Route: 065
  7. PERCOCET [Concomitant]
     Indication: PRODUCT USED FOR UNKNOWN INDICATION
     Route: 065
  8. SINGULAIR [Concomitant]
     Indication: PRODUCT USED FOR UNKNOWN INDICATION
     Route: 065
  9. LEVAQUIN [Concomitant]
     Indication: SKIN INFECTION
  10. VALTREX [Concomitant]

REACTIONS (7)
  - BILIARY DYSKINESIA [None]
  - ABDOMINAL PAIN [None]
  - VOMITING [None]
  - FAECES DISCOLOURED [None]
  - ABDOMINAL TENDERNESS [None]
  - CHOLECYSTITIS CHRONIC [None]
  - NAUSEA [None]
